FAERS Safety Report 4708103-9 (Version None)
Quarter: 2005Q3

REPORT INFORMATION
  Report Type: 
  Country: None (occurrence: None)
  Receive Date: 20050705
  Receipt Date: 20050705
  Transmission Date: 20060218
  Serious: Yes (Hospitalization)
  Sender: FDA-Public Use
  Company Number: None

PATIENT
  Sex: Female
  Weight: 56.246 kg

DRUGS (5)
  1. OXYCODONE HCL [Suspect]
     Indication: PAIN
     Dosage: 12-16 ML PER J TUBE Q 3-4 HOURS
     Dates: start: 20050521, end: 20050529
  2. ESTRADERM [Concomitant]
  3. ALPRAZOLAM [Concomitant]
  4. MELRONIDAZOLE [Concomitant]
  5. ZOFRAN [Concomitant]

REACTIONS (12)
  - BACK PAIN [None]
  - CHROMATURIA [None]
  - DIZZINESS [None]
  - HYPERTENSION [None]
  - INFLUENZA LIKE ILLNESS [None]
  - MALAISE [None]
  - MYALGIA [None]
  - PHARMACEUTICAL PRODUCT COMPLAINT [None]
  - PYREXIA [None]
  - RENAL PAIN [None]
  - SINUS TACHYCARDIA [None]
  - URINE ODOUR ABNORMAL [None]
